FAERS Safety Report 11300863 (Version 1)
Quarter: 2015Q3

REPORT INFORMATION
  Report Type: Spontaneous
  Country: US (occurrence: None)
  Receive Date: 20150723
  Receipt Date: 20150723
  Transmission Date: 20151125
  Serious: Yes (Hospitalization)
  Sender: FDA-Public Use
  Company Number: None

PATIENT
  Age: 67 Year
  Sex: Male
  Weight: 120 kg

DRUGS (13)
  1. HEPARIN SODIUM. [Suspect]
     Active Substance: HEPARIN SODIUM
     Indication: ANTICOAGULANT THERAPY
     Dosage: 90,000 UNITS
     Route: 042
     Dates: start: 20150407, end: 20150413
  2. AMIODARONE [Concomitant]
     Active Substance: AMIODARONE
  3. LANSOPRAZOLE. [Concomitant]
     Active Substance: LANSOPRAZOLE
  4. SODIUM DOCUSATE [Concomitant]
     Active Substance: DOCUSATE SODIUM
  5. SIMVASTATIN. [Concomitant]
     Active Substance: SIMVASTATIN
  6. MISOPROSTOL. [Concomitant]
     Active Substance: MISOPROSTOL
  7. ASPIRIN. [Concomitant]
     Active Substance: ASPIRIN
  8. CLOPIDOGREL [Concomitant]
     Active Substance: CLOPIDOGREL BISULFATE
  9. LEVOTHYROXINE. [Concomitant]
     Active Substance: LEVOTHYROXINE
  10. FAMOTIDINE. [Concomitant]
     Active Substance: FAMOTIDINE
  11. SIMVASTATIN. [Concomitant]
     Active Substance: SIMVASTATIN
  12. SUCRALFATE. [Concomitant]
     Active Substance: SUCRALFATE
  13. CEFEPIME [Concomitant]
     Active Substance: CEFEPIME HYDROCHLORIDE

REACTIONS (6)
  - Respiratory failure [None]
  - Dialysis [None]
  - Ventricular tachycardia [None]
  - Acute kidney injury [None]
  - Heparin-induced thrombocytopenia [None]
  - Deep vein thrombosis [None]

NARRATIVE: CASE EVENT DATE: 20150419
